FAERS Safety Report 8413724-6 (Version None)
Quarter: 2012Q2

REPORT INFORMATION
  Report Type: 
  Country: None (occurrence: None)
  Receive Date: 20120605
  Receipt Date: 20120531
  Transmission Date: 20120825
  Serious: Yes (Other)
  Sender: FDA-Public Use
  Company Number: US-PFIZER INC-2012126193

PATIENT
  Sex: Female
  Weight: 89.796 kg

DRUGS (27)
  1. XANAX [Suspect]
     Indication: ANXIETY
     Dosage: UNK
  2. NEURONTIN [Suspect]
     Indication: POST-TRAUMATIC STRESS DISORDER
  3. PROZAC [Concomitant]
     Indication: NIGHTMARE
  4. MELATONIN [Concomitant]
     Indication: SLEEP DISORDER
     Dosage: UNK
  5. NEURONTIN [Suspect]
     Indication: NIGHTMARE
  6. LEXAPRO [Concomitant]
     Indication: NIGHTMARE
  7. VITAMIN D [Concomitant]
     Dosage: 1000 IU, DAILY
  8. OXYGEN [Concomitant]
     Indication: CHRONIC OBSTRUCTIVE PULMONARY DISEASE
     Dosage: UNK
  9. ZOLOFT [Suspect]
     Indication: NIGHTMARE
  10. NORCO [Concomitant]
     Indication: PAIN
     Dosage: UNK
  11. LASIX [Concomitant]
     Indication: DIURETIC THERAPY
     Dosage: UNK
  12. POTASSIUM [Concomitant]
     Dosage: UNK
  13. NEURONTIN [Suspect]
     Indication: DEPRESSION
     Dosage: UNK
  14. WELLBUTRIN [Concomitant]
     Indication: DEPRESSION
     Dosage: UNK
  15. CHANTIX [Suspect]
     Indication: SMOKING CESSATION THERAPY
     Dosage: 0.5 MG, DAILY
     Dates: start: 20120301, end: 20120401
  16. ZOLOFT [Suspect]
     Indication: DEPRESSION
     Dosage: UNK
  17. PROZAC [Concomitant]
     Indication: DEPRESSION
     Dosage: UNK
  18. PROZAC [Concomitant]
     Indication: POST-TRAUMATIC STRESS DISORDER
  19. ZOLOFT [Suspect]
     Indication: POST-TRAUMATIC STRESS DISORDER
  20. LEXAPRO [Concomitant]
     Indication: DEPRESSION
     Dosage: UNK
  21. FENTANYL [Concomitant]
     Indication: PAIN
     Dosage: UNK
     Route: 062
  22. ZANTAC [Concomitant]
     Indication: GASTRIC DISORDER
     Dosage: UNK
  23. CHANTIX [Suspect]
     Dosage: 0.5 MG, DAILY
     Dates: start: 20120501
  24. WELLBUTRIN [Concomitant]
     Indication: NIGHTMARE
  25. WELLBUTRIN [Concomitant]
     Indication: POST-TRAUMATIC STRESS DISORDER
  26. LEXAPRO [Concomitant]
     Indication: POST-TRAUMATIC STRESS DISORDER
  27. ASPIRIN [Concomitant]
     Dosage: UNK, DAILY

REACTIONS (7)
  - THERAPEUTIC RESPONSE UNEXPECTED [None]
  - DRUG INEFFECTIVE [None]
  - NIGHTMARE [None]
  - DEPRESSION [None]
  - POST-TRAUMATIC STRESS DISORDER [None]
  - DRUG INEFFECTIVE FOR UNAPPROVED INDICATION [None]
  - OFF LABEL USE [None]
